FAERS Safety Report 8228412-9 (Version None)
Quarter: 2012Q1

REPORT INFORMATION
  Report Type: 
  Country: None (occurrence: None)
  Receive Date: 20120322
  Receipt Date: 20110714
  Transmission Date: 20120608
  Serious: Yes (Other)
  Sender: FDA-Public Use
  Company Number: US-BRISTOL-MYERS SQUIBB COMPANY-15902661

PATIENT
  Sex: Male

DRUGS (2)
  1. ERBITUX [Suspect]
     Indication: COLON CANCER
     Dosage: 1ST INFUSION WITH CETUXIMAB.
     Dates: start: 20110712
  2. IRINOTECAN HCL [Suspect]
     Indication: COLON CANCER
     Dates: start: 20110712

REACTIONS (1)
  - HYPERSENSITIVITY [None]
